FAERS Safety Report 10391097 (Version 2)
Quarter: 2014Q3

REPORT INFORMATION
  Report Type: Spontaneous
  Country: US (occurrence: US)
  Receive Date: 20140818
  Receipt Date: 20140903
  Transmission Date: 20150326
  Serious: Yes (Hospitalization)
  Sender: FDA-Public Use
  Company Number: US-GLAXOSMITHKLINE-A1085273A

PATIENT
  Age: 64 Year
  Sex: Female

DRUGS (1)
  1. VENTOLIN [Suspect]
     Active Substance: ALBUTEROL SULFATE
     Indication: ASTHMA
     Dosage: 200MCG UNKNOWN
     Route: 055
     Dates: start: 2009

REACTIONS (1)
  - Joint injury [Unknown]

NARRATIVE: CASE EVENT DATE: 201406
